FAERS Safety Report 11742247 (Version 1)
Quarter: 2015Q4

REPORT INFORMATION
  Report Type: Spontaneous
  Country: CA (occurrence: CA)
  Receive Date: 20151116
  Receipt Date: 20151116
  Transmission Date: 20160304
  Serious: Yes (Other)
  Sender: FDA-Public Use
  Company Number: CA-PURDUE PHARMA-CAN-2015-0006250

PATIENT
  Sex: Female

DRUGS (1)
  1. HYDROMORPH CONTIN 6 MG [Suspect]
     Active Substance: HYDROMORPHONE
     Indication: PAIN
     Dosage: 6 MG, BID
     Route: 065

REACTIONS (1)
  - Delirium [Unknown]
